FAERS Safety Report 25662712 (Version 1)
Quarter: 2025Q3

REPORT INFORMATION
  Report Type: Other
  Country: EU (occurrence: EU)
  Receive Date: 20250811
  Receipt Date: 20250811
  Transmission Date: 20251021
  Serious: Yes (Hospitalization)
  Sender: BIONPHARMA INC.
  Company Number: EU-Bion-015184

PATIENT
  Sex: Female

DRUGS (3)
  1. IBUPROFEN [Suspect]
     Active Substance: IBUPROFEN
     Indication: Pericarditis
  2. COLCHICINE [Concomitant]
     Active Substance: COLCHICINE
     Indication: Pericarditis
  3. IBUPROFEN [Suspect]
     Active Substance: IBUPROFEN
     Indication: Pericarditis

REACTIONS (1)
  - Rebound effect [Unknown]
